FAERS Safety Report 5339478-8 (Version None)
Quarter: 2007Q2

REPORT INFORMATION
  Report Type: 
  Country: None (occurrence: None)
  Receive Date: 20070404
  Receipt Date: 20060424
  Transmission Date: 20071010
  Serious: Yes (Other)
  Sender: FDA-Public Use
  Company Number: 2006036128

PATIENT
  Age: 42 Year
  Sex: Female
  Weight: 86.1834 kg

DRUGS (5)
  1. GEODON [Suspect]
     Indication: SLEEP DISORDER
     Dosage: 80 MG (80 MG, 1 IN 1 D) UNKNOWN
     Dates: start: 20050901, end: 20060101
  2. LORTAB (HYDROCHLORIDE BITARTRATE, PARACETAMOL) [Concomitant]
  3. DIAZEPAM [Concomitant]
  4. PROZAC [Concomitant]
  5. CYMBALTA [Concomitant]

REACTIONS (4)
  - BLOOD PRESSURE INCREASED [None]
  - EMOTIONAL DISORDER [None]
  - HEADACHE [None]
  - NEUROPATHY [None]
